FAERS Safety Report 6268935-5 (Version None)
Quarter: 2009Q3

REPORT INFORMATION
  Report Type: 
  Country: None (occurrence: None)
  Receive Date: 20090715
  Receipt Date: 20090706
  Transmission Date: 20100115
  Serious: Yes (Hospitalization)
  Sender: FDA-Public Use
  Company Number: AU-ASTRAZENECA-2009SE04203

PATIENT
  Age: 44 Year
  Sex: Female

DRUGS (1)
  1. EMLA [Suspect]
     Indication: THERAPEUTIC SKIN CARE TOPICAL
     Dosage: ONE UNSPECIFIED DOSE ONE TIME
     Route: 061

REACTIONS (4)
  - BLOOD METHAEMOGLOBIN [None]
  - CYANOSIS [None]
  - FATIGUE [None]
  - OVERDOSE [None]
